FAERS Safety Report 7564660-9 (Version None)
Quarter: 2011Q2

REPORT INFORMATION
  Report Type: 
  Country: None (occurrence: None)
  Receive Date: 20110622
  Receipt Date: 20101108
  Transmission Date: 20111010
  Serious: Yes (Other)
  Sender: FDA-Public Use
  Company Number: US-MYLANLABS-2010S1014331

PATIENT
  Age: 61 Year
  Sex: Female

DRUGS (3)
  1. BUSPAR [Concomitant]
  2. RISPERIDONE [Concomitant]
  3. CLOZAPINE [Suspect]
     Route: 048
     Dates: end: 20100902

REACTIONS (2)
  - LEUKOPENIA [None]
  - GRANULOCYTOPENIA [None]
